FAERS Safety Report 5633080-6 (Version None)
Quarter: 2008Q1

REPORT INFORMATION
  Report Type: 
  Country: None (occurrence: None)
  Receive Date: 20080221
  Receipt Date: 20080215
  Transmission Date: 20080703
  Serious: Yes (Other)
  Sender: FDA-Public Use
  Company Number: JP-AVENTIS-200810499JP

PATIENT
  Age: 72 Year
  Sex: Male

DRUGS (2)
  1. LASIX [Suspect]
     Route: 048
     Dates: start: 20060701, end: 20060901
  2. UNKNOWN DRUG [Suspect]

REACTIONS (1)
  - TOXIC EPIDERMAL NECROLYSIS [None]
